FAERS Safety Report 8479761-0 (Version None)
Quarter: 2012Q2

REPORT INFORMATION
  Report Type: 
  Country: None (occurrence: None)
  Receive Date: 20120620
  Receipt Date: 20120608
  Transmission Date: 20120825
  Serious: Yes (Other)
  Sender: FDA-Public Use
  Company Number: DSA_57913_2012

PATIENT
  Sex: Female

DRUGS (3)
  1. THERAPEUTIC RADIOPHARMACEUTICALS (THERAPEUTIC RADIOPHARMACEUTICALS) [Suspect]
     Indication: CERVIX CARCINOMA
     Dosage: (DF)
  2. CISPLATIN [Suspect]
     Indication: CERVIX CARCINOMA
     Dosage: (20 MG/M2 INTRAVENOUS (NOT OTHERWISE SPECIFIED)
     Route: 042
  3. FLUOROURACIL [Suspect]
     Indication: CERVIX CARCINOMA
     Dosage: (1000 MG/M2 INTRAVENOUS (NOT OTHERWISE SPECIFIED)
     Route: 042

REACTIONS (1)
  - HERPES SIMPLEX [None]
